FAERS Safety Report 11287620 (Version 1)
Quarter: 2015Q3

REPORT INFORMATION
  Report Type: Spontaneous
  Country: US (occurrence: None)
  Receive Date: 20150720
  Receipt Date: 20150720
  Transmission Date: 20151125
  Serious: No
  Sender: FDA-Public Use
  Company Number: None

PATIENT
  Age: 54 Year
  Sex: Male
  Weight: 131.54 kg

DRUGS (12)
  1. LITHIUM. [Concomitant]
     Active Substance: LITHIUM
  2. ZIPRASIDONE. [Concomitant]
     Active Substance: ZIPRASIDONE
  3. ESCITALOPRAM [Concomitant]
     Active Substance: ESCITALOPRAM OXALATE
  4. VYTORIN [Concomitant]
     Active Substance: EZETIMIBE\SIMVASTATIN
  5. METFORMIN [Concomitant]
     Active Substance: METFORMIN HYDROCHLORIDE
  6. TAMSULOSIN [Suspect]
     Active Substance: TAMSULOSIN
  7. ASPIRIN. [Concomitant]
     Active Substance: ASPIRIN
  8. GLIMEPIRIDE. [Concomitant]
     Active Substance: GLIMEPIRIDE
  9. OLANZAPINE. [Concomitant]
     Active Substance: OLANZAPINE
  10. IC TAMSULOSIN HCL 0.4 MG [Suspect]
     Active Substance: TAMSULOSIN HYDROCHLORIDE
     Indication: POLLAKIURIA
     Dosage: 1 PILL
     Route: 048
     Dates: start: 20150210, end: 20150717
  11. BENZTROPINE [Suspect]
     Active Substance: BENZTROPINE
  12. LANTUS SOLOSTAR (INSULIN) [Concomitant]

REACTIONS (1)
  - Semen discolouration [None]

NARRATIVE: CASE EVENT DATE: 20150715
